FAERS Safety Report 9356721 (Version 1)
Quarter: 2013Q2

REPORT INFORMATION
  Report Type: Report from Study
  Country: BR (occurrence: BR)
  Receive Date: 20130619
  Receipt Date: 20130619
  Transmission Date: 20140414
  Serious: Yes (Other)
  Sender: FDA-Public Use
  Company Number: PHHY2013BR061782

PATIENT
  Sex: Male

DRUGS (1)
  1. DIOVAN HCT [Suspect]
     Dosage: 1DF (160 MG VALS/12.5 MG HCT) (1 TABLET IN THE MORNING) UKN

REACTIONS (8)
  - Abasia [Recovering/Resolving]
  - General physical condition abnormal [Recovering/Resolving]
  - Erythema [Recovering/Resolving]
  - Limb discomfort [Recovering/Resolving]
  - Abdominal distension [Recovering/Resolving]
  - Local swelling [Recovering/Resolving]
  - Cough [Recovering/Resolving]
  - Blood pressure decreased [Recovering/Resolving]
